FAERS Safety Report 14349025 (Version 4)
Quarter: 2018Q3

REPORT INFORMATION
  Report Type: Report from Study
  Country: IN (occurrence: IN)
  Receive Date: 20180104
  Receipt Date: 20180716
  Transmission Date: 20181010
  Serious: Yes (Death, Life-Threatening, Hospitalization, Other)
  Sender: FDA-Public Use
  Company Number: IN-AMGEN-INDSP2017193033

PATIENT
  Age: 33 Year
  Sex: Male

DRUGS (1)
  1. VECTIBIX [Suspect]
     Active Substance: PANITUMUMAB
     Indication: COLORECTAL CANCER METASTATIC
     Dosage: 300 MG, UNK (300MG/15 DAYS)
     Route: 042
     Dates: start: 20171205

REACTIONS (3)
  - Asthenia [Unknown]
  - Colon operation [Unknown]
  - Death [Fatal]

NARRATIVE: CASE EVENT DATE: 201712
